FAERS Safety Report 5084935-5 (Version None)
Quarter: 2006Q3

REPORT INFORMATION
  Report Type: 
  Country: None (occurrence: None)
  Receive Date: 20060815
  Receipt Date: 20060730
  Transmission Date: 20061208
  Serious: Yes (Hospitalization)
  Sender: FDA-Public Use
  Company Number: 2006PV018466

PATIENT
  Age: 70 Year
  Sex: Female
  Weight: 106.5953 kg

DRUGS (8)
  1. BYETTA [Suspect]
     Indication: DIABETES MELLITUS NON-INSULIN-DEPENDENT
     Dosage: 10 MCG BID SC ; 5 MCG BID SC
     Route: 058
     Dates: start: 20050601, end: 20050101
  2. BYETTA [Suspect]
     Indication: DIABETES MELLITUS NON-INSULIN-DEPENDENT
     Dosage: 10 MCG BID SC ; 5 MCG BID SC
     Route: 058
     Dates: start: 20050101
  3. GLUCOPHAGE [Concomitant]
  4. AMARYL [Concomitant]
  5. GEMFIBROZIL [Concomitant]
  6. TOPROL-XL [Concomitant]
  7. DIOVAN [Concomitant]
  8. PREVACID [Concomitant]

REACTIONS (6)
  - BLOOD GLUCOSE INCREASED [None]
  - FALL [None]
  - PATELLA FRACTURE [None]
  - THERAPEUTIC RESPONSE UNEXPECTED [None]
  - URINARY TRACT INFECTION [None]
  - WEIGHT DECREASED [None]
